FAERS Safety Report 7701471-5 (Version None)
Quarter: 2011Q3

REPORT INFORMATION
  Report Type: 
  Country: None (occurrence: None)
  Receive Date: 20110822
  Receipt Date: 20110817
  Transmission Date: 20111222
  Serious: Yes (Other)
  Sender: FDA-Public Use
  Company Number: BR-PFIZER INC-2011189315

PATIENT
  Age: 50 Year
  Sex: Female

DRUGS (1)
  1. SPIRONOLACTONE [Suspect]
     Route: 048

REACTIONS (4)
  - RETCHING [None]
  - FORMICATION [None]
  - HYPERTENSION [None]
  - HEADACHE [None]
